FAERS Safety Report 14897644 (Version 1)
Quarter: 2018Q2

REPORT INFORMATION
  Report Type: Spontaneous
  Country: IE (occurrence: IE)
  Receive Date: 20180515
  Receipt Date: 20180515
  Transmission Date: 20180711
  Serious: Yes (Other)
  Sender: FDA-Public Use
  Company Number: IE-SHIRE-IE201816829

PATIENT

DRUGS (3)
  1. INFLIXIMAB [Suspect]
     Active Substance: INFLIXIMAB
     Indication: INFLAMMATORY BOWEL DISEASE
     Dosage: 5 MG/KG, 1ST INFUSION, INFUSED OVER 1.5 HOURS AT 0, 2, 6 WEEKS AND EVERY 8 WEEKS
     Route: 065
  2. 476 (MESALAZINE/MESALAMINE) [Suspect]
     Active Substance: MESALAMINE
     Indication: INFLAMMATORY BOWEL DISEASE
     Dosage: UNKNOWN
     Route: 065
  3. INFLIXIMAB [Suspect]
     Active Substance: INFLIXIMAB
     Dosage: 10 MG/KG, 2ND INFUSION, INFUSED OVER 1.5 HOURS AT 0, 2, 6 WEEKS AND EVERY 8 WEEKS
     Route: 065

REACTIONS (2)
  - Bradycardia [Recovered/Resolved]
  - Sinus bradycardia [Unknown]
